FAERS Safety Report 23044154 (Version 1)
Quarter: 2023Q4

REPORT INFORMATION
  Report Type: Spontaneous
  Country: US (occurrence: US)
  Receive Date: 20231009
  Receipt Date: 20231009
  Transmission Date: 20240109
  Serious: Yes (Hospitalization, Other)
  Sender: FDA-Public Use
  Company Number: US-CADILA HEALTHCARE LIMITED-US-ZYDUS-098696

PATIENT

DRUGS (3)
  1. IVERMECTIN [Suspect]
     Active Substance: IVERMECTIN
     Indication: Suicide attempt
     Dosage: UNK
     Route: 065
  2. ZOLPIDEM [Concomitant]
     Active Substance: ZOLPIDEM TARTRATE
     Indication: Suicide attempt
     Dosage: UNK
     Route: 065
  3. KETOROLAC [Concomitant]
     Active Substance: KETOROLAC TROMETHAMINE
     Indication: Suicide attempt
     Dosage: UNK
     Route: 065

REACTIONS (2)
  - Mental status changes [Recovered/Resolved]
  - Blindness [Recovered/Resolved]
